FAERS Safety Report 10632269 (Version 1)
Quarter: 2014Q4

REPORT INFORMATION
  Report Type: Spontaneous
  Country: US (occurrence: US)
  Receive Date: 20141205
  Receipt Date: 20141205
  Transmission Date: 20150529
  Serious: Yes (Disabling)
  Sender: FDA-Public Use
  Company Number: US-BRISTOL-MYERS SQUIBB COMPANY-21278239

PATIENT
  Age: 60 Year
  Sex: Female

DRUGS (9)
  1. BUPROPION [Concomitant]
     Active Substance: BUPROPION
  2. METFORMIN [Concomitant]
     Active Substance: METFORMIN HYDROCHLORIDE
  3. ALLOPURINOL. [Concomitant]
     Active Substance: ALLOPURINOL
  4. ABILIFY [Suspect]
     Active Substance: ARIPIPRAZOLE
     Indication: DEPRESSION
     Dosage: INITIAL DOSE 2 MG:1 MONTH
     Route: 048
     Dates: start: 20140528, end: 20140728
  5. GLIPIZIDE. [Concomitant]
     Active Substance: GLIPIZIDE
  6. LUVOX [Concomitant]
     Active Substance: FLUVOXAMINE MALEATE
  7. OMEPRAZOLE. [Concomitant]
     Active Substance: OMEPRAZOLE
  8. PRAVASTATIN [Concomitant]
     Active Substance: PRAVASTATIN\PRAVASTATIN SODIUM
  9. ATENOLOL. [Concomitant]
     Active Substance: ATENOLOL

REACTIONS (1)
  - Depression [Unknown]

NARRATIVE: CASE EVENT DATE: 20140728
